FAERS Safety Report 11438732 (Version 1)
Quarter: 2015Q3

REPORT INFORMATION
  Report Type: Spontaneous
  Country: US (occurrence: US)
  Receive Date: 20150901
  Receipt Date: 20150901
  Transmission Date: 20151125
  Serious: No
  Sender: FDA-Public Use
  Company Number: US-ROCHE-1084629

PATIENT
  Sex: Female

DRUGS (3)
  1. TELAPREVIR [Suspect]
     Active Substance: TELAPREVIR
     Indication: HEPATITIS C
     Route: 065
     Dates: start: 20120511
  2. RIBASPHERE RIBAPAK [Suspect]
     Active Substance: RIBAVIRIN
     Indication: HEPATITIS C
     Dosage: DIVIDED DOSES
     Route: 048
     Dates: start: 20120511
  3. PEGASYS [Suspect]
     Active Substance: PEGINTERFERON ALFA-2A
     Indication: HEPATITIS C
     Route: 058
     Dates: start: 20120511

REACTIONS (10)
  - Vomiting [Recovering/Resolving]
  - Nausea [Recovered/Resolved]
  - Diarrhoea [Unknown]
  - Anorectal discomfort [Recovering/Resolving]
  - Decreased appetite [Unknown]
  - Contusion [Unknown]
  - Ageusia [Unknown]
  - Weight decreased [Unknown]
  - Proctalgia [Recovering/Resolving]
  - Arthropod bite [Unknown]
